FAERS Safety Report 7679460-9 (Version None)
Quarter: 2011Q3

REPORT INFORMATION
  Report Type: 
  Country: None (occurrence: None)
  Receive Date: 20110812
  Receipt Date: 20110812
  Transmission Date: 20111222
  Serious: Yes (Other)
  Sender: FDA-Public Use
  Company Number: None

PATIENT
  Age: 54 Year
  Sex: Female
  Weight: 791.51 kg

DRUGS (1)
  1. PRADAXA [Suspect]
     Indication: PULMONARY EMBOLISM
     Dosage: 75 MG
     Route: 048
     Dates: start: 20110418, end: 20110721

REACTIONS (1)
  - RECTAL HAEMORRHAGE [None]
